FAERS Safety Report 5162266-2 (Version None)
Quarter: 2006Q4

REPORT INFORMATION
  Report Type: 
  Country: None (occurrence: None)
  Receive Date: 20061121
  Receipt Date: 20061102
  Transmission Date: 20070319
  Serious: Yes (Death)
  Sender: FDA-Public Use
  Company Number: 061109-0001011

PATIENT
  Age: 17 Year

DRUGS (1)
  1. NEOPROFEN [Suspect]
     Indication: COMPLETED SUICIDE
     Dosage: PO
     Route: 048

REACTIONS (3)
  - COMPLETED SUICIDE [None]
  - INTENTIONAL SELF-INJURY [None]
  - SUBSTANCE ABUSE [None]
